FAERS Safety Report 11019802 (Version 2)
Quarter: 2015Q2

REPORT INFORMATION
  Report Type: Spontaneous
  Country: US (occurrence: US)
  Receive Date: 20150412
  Receipt Date: 20150525
  Transmission Date: 20150821
  Serious: No
  Sender: FDA-Public Use
  Company Number: US-JNJFOC-20130613966

PATIENT
  Age: 81 Year
  Sex: Male
  Weight: 74.84 kg

DRUGS (2)
  1. BABY ASPIRIN [Concomitant]
     Active Substance: ASPIRIN
     Indication: PROPHYLAXIS
     Route: 048
  2. LEVAQUIN [Suspect]
     Active Substance: LEVOFLOXACIN
     Indication: SINUSITIS
     Route: 048
     Dates: start: 20130102, end: 20130104

REACTIONS (8)
  - Balance disorder [Not Recovered/Not Resolved]
  - Hypoaesthesia [Recovering/Resolving]
  - Pain [Recovered/Resolved]
  - Rectal haemorrhage [Not Recovered/Not Resolved]
  - Oropharyngeal pain [Recovering/Resolving]
  - Peripheral swelling [Recovering/Resolving]
  - Adverse event [Not Recovered/Not Resolved]
  - Arthralgia [Recovered/Resolved]

NARRATIVE: CASE EVENT DATE: 2013
